FAERS Safety Report 6112670-0 (Version None)
Quarter: 2009Q1

REPORT INFORMATION
  Report Type: 
  Country: None (occurrence: None)
  Receive Date: 20090312
  Receipt Date: 20090305
  Transmission Date: 20090719
  Serious: Yes (Hospitalization)
  Sender: FDA-Public Use
  Company Number: KR-AMGEN-US336353

PATIENT
  Age: 46 Year
  Sex: Female

DRUGS (5)
  1. ENBREL [Suspect]
     Indication: DRUG USE FOR UNKNOWN INDICATION
     Route: 058
  2. AZATHIOPRINE [Suspect]
     Route: 065
  3. CYCLOPHOSPHAMIDE [Suspect]
     Route: 065
  4. METHOTREXATE [Suspect]
     Route: 065
  5. GLUCOCORTICOIDS [Suspect]
     Route: 065

REACTIONS (1)
  - NECROTISING FASCIITIS STAPHYLOCOCCAL [None]
